FAERS Safety Report 5467079-X (Version None)
Quarter: 2007Q3

REPORT INFORMATION
  Report Type: 
  Country: None (occurrence: None)
  Receive Date: 20070925
  Receipt Date: 20070914
  Transmission Date: 20080115
  Serious: Yes (Death, Other)
  Sender: FDA-Public Use
  Company Number: HQWYE187504FEB03

PATIENT
  Sex: Female

DRUGS (1)
  1. PREMPRO [Suspect]
     Dosage: UNKNOWN
     Route: 048
     Dates: start: 19880101

REACTIONS (1)
  - BREAST CANCER METASTATIC [None]
